FAERS Safety Report 18729608 (Version 2)
Quarter: 2021Q1

REPORT INFORMATION
  Report Type: Other
  Country: CZ (occurrence: CZ)
  Receive Date: 20210112
  Receipt Date: 20210208
  Transmission Date: 20210419
  Serious: Yes (Other)
  Sender: FDA-Public Use
  Company Number: CZ-ROCHE-2746766

PATIENT
  Age: 63 Year
  Sex: Female

DRUGS (1)
  1. IBANDRONIC ACID. [Suspect]
     Active Substance: IBANDRONIC ACID
     Indication: OSTEOPOROSIS POSTMENOPAUSAL
     Route: 048

REACTIONS (1)
  - Spondylitis [Recovering/Resolving]
